FAERS Safety Report 5938027-0 (Version None)
Quarter: 2008Q4

REPORT INFORMATION
  Report Type: 
  Country: None (occurrence: None)
  Receive Date: 20081031
  Receipt Date: 20081024
  Transmission Date: 20090506
  Serious: Yes (Death)
  Sender: FDA-Public Use
  Company Number: GB-AMGEN-US316069

PATIENT
  Sex: Male

DRUGS (8)
  1. ENBREL [Suspect]
     Indication: ANKYLOSING SPONDYLITIS
     Route: 058
     Dates: start: 20050301
  2. FOLIC ACID [Concomitant]
     Dosage: UNKNOWN
     Route: 065
  3. SIMVASTATIN [Concomitant]
     Dosage: UNKNOWN
     Route: 065
  4. METHOTREXATE [Concomitant]
     Dosage: UNKNOWN
     Route: 065
  5. ACETAMINOPHEN [Concomitant]
     Dosage: UNKNOWN
     Route: 065
  6. PERINDOPRIL [Concomitant]
     Dosage: UNKNOWN
     Route: 065
  7. ACETYLSALICYLIC ACID SRT [Concomitant]
     Dosage: UNKNOWN
     Route: 065
  8. INSULIN [Concomitant]
     Dosage: UNKNOWN
     Route: 065

REACTIONS (1)
  - DEATH [None]
